FAERS Safety Report 20720988 (Version 1)
Quarter: 2022Q2

REPORT INFORMATION
  Report Type: Spontaneous
  Country: US (occurrence: None)
  Receive Date: 20220418
  Receipt Date: 20220418
  Transmission Date: 20220721
  Serious: Yes (Death, Hospitalization)
  Sender: FDA-Public Use
  Company Number: None

PATIENT
  Age: 83 Year
  Sex: Male
  Weight: 149.2 kg

DRUGS (8)
  1. CAPECITABINE [Suspect]
     Active Substance: CAPECITABINE
     Indication: Rectal cancer
     Dosage: FREQUENCY : TWICE A DAY;?
     Route: 048
  2. AMLODIPINE [Suspect]
     Active Substance: AMLODIPINE BESYLATE
  3. DUTASTERIDE [Suspect]
     Active Substance: DUTASTERIDE
  4. FAMOTIDINE [Suspect]
     Active Substance: FAMOTIDINE
  5. LORAZEPAM [Suspect]
     Active Substance: LORAZEPAM
  6. METOCLOPRAMIDE [Suspect]
     Active Substance: METOCLOPRAMIDE
  7. METOPROLOL [Suspect]
     Active Substance: METOPROLOL
  8. NEXIUM [Suspect]
     Active Substance: ESOMEPRAZOLE MAGNESIUM

REACTIONS (1)
  - Death [None]
